FAERS Safety Report 7249502-3 (Version None)
Quarter: 2011Q1

REPORT INFORMATION
  Report Type: 
  Country: None (occurrence: None)
  Receive Date: 20110128
  Receipt Date: 20101220
  Transmission Date: 20110831
  Serious: Yes (Other)
  Sender: FDA-Public Use
  Company Number: US-BAYER-2010-007218

PATIENT
  Sex: Male

DRUGS (2)
  1. BACLOFEN [Concomitant]
     Dosage: 10 MG, UNK
     Route: 048
  2. BETASERON [Suspect]
     Indication: MULTIPLE SCLEROSIS
     Dosage: 6 MIU, QOD
     Route: 058
     Dates: start: 20101122

REACTIONS (2)
  - DEPRESSION [None]
  - SUICIDAL IDEATION [None]
